FAERS Safety Report 5530721-9 (Version None)
Quarter: 2007Q4

REPORT INFORMATION
  Report Type: 
  Country: None (occurrence: None)
  Receive Date: 20071128
  Receipt Date: 20071128
  Transmission Date: 20080405
  Serious: Yes (Hospitalization)
  Sender: FDA-Public Use
  Company Number: None

PATIENT
  Age: 65 Year
  Sex: Female
  Weight: 86 kg

DRUGS (2)
  1. ASPIRIN [Suspect]
     Indication: CARDIOVASCULAR EVENT PROPHYLAXIS
     Dosage: 325MG PO DAILY
     Route: 048
     Dates: start: 20070803, end: 20070921
  2. CELEXA [Suspect]
     Indication: DEPRESSION
     Dosage: 40 MG PO DAILY STARTED AT 20MG DAILY
     Route: 048
     Dates: start: 20070828

REACTIONS (4)
  - CONTUSION [None]
  - DRUG INTERACTION [None]
  - HAEMATOCRIT DECREASED [None]
  - HAEMORRHAGE [None]
